FAERS Safety Report 8116875-9 (Version None)
Quarter: 2011Q4

REPORT INFORMATION
  Report Type: 
  Country: None (occurrence: None)
  Receive Date: 20111227
  Receipt Date: 20110713
  Transmission Date: 20120403
  Serious: Yes (Disabling)
  Sender: FDA-Public Use
  Company Number: PHHY2011US39350

PATIENT
  Age: 56 Year
  Sex: Female
  Weight: 46 kg

DRUGS (18)
  1. CALCIUM (CALCIUM) TABLET [Concomitant]
  2. CLARITIN [Concomitant]
  3. QUININE SULFATE (QUININE SULFATE) CAPSULE [Concomitant]
  4. SENNA (SENNA, SENNA ALEXANDRINA) [Concomitant]
  5. FEMARA [Suspect]
     Indication: BREAST CANCER STAGE II
     Dosage: 2.5 MG, ORAL
     Route: 048
     Dates: start: 20050628
  6. CASCARA SAGRADA (CASCARA, RHAMNUS PURSHIANA) CAPSULE [Concomitant]
  7. MIACALCIN (CALCITONIN, SALMON) SOLUTION [Concomitant]
  8. PATANOL (OLOPATADINE HYDROCHLORIDE) SOLUTION [Concomitant]
  9. HYDROCORTISONE (HYDROCORTISONE) OINTMENT [Concomitant]
  10. ASPIRIN [Concomitant]
  11. RANITIDINE (RANITIDINE) TABLET [Concomitant]
  12. TERBINAFINE HYDROCHLORIDE (TERBINAFINE HYDROCHLORIDE) CREAM [Concomitant]
  13. TOLMETIN SODIUM (TOLMETIN SODIUM) TABLET [Concomitant]
  14. TRETINOIN (TRETINOIN) CREAM [Concomitant]
  15. PROBIOTICS (NO INGREDIENTS/SUBSTANCES) [Concomitant]
  16. PAXIL [Concomitant]
  17. SYNTHROID (LEVOTHYROXINE SODIUM) TABLET [Concomitant]
  18. AMOXICILLIN (AMOXICILLIN) CAPSULE [Concomitant]

REACTIONS (1)
  - OSTEOPENIA [None]
